FAERS Safety Report 6477674-7 (Version None)
Quarter: 2009Q4

REPORT INFORMATION
  Report Type: 
  Country: None (occurrence: None)
  Receive Date: 20091119
  Receipt Date: 20091029
  Transmission Date: 20100525
  Serious: Yes (Life-Threatening, Hospitalization, Other)
  Sender: FDA-Public Use
  Company Number: 2008-178673-NL

PATIENT
  Age: 31 Year
  Sex: Female
  Weight: 66.8 kg

DRUGS (3)
  1. IMPLANON [Suspect]
     Indication: CONTRACEPTION
     Dosage: ; SBDE
     Route: 059
     Dates: start: 20051124
  2. KIVEXA (ABACAVIR SULFATE W/LAMIVUDINE) [Suspect]
     Indication: ANTIVIRAL PROPHYLAXIS
     Dates: start: 20070101
  3. SUSTIVA [Suspect]
     Indication: ANTIVIRAL PROPHYLAXIS
     Dosage: ; PO
     Route: 048
     Dates: start: 20050101

REACTIONS (4)
  - DRUG EXPOSURE DURING PREGNANCY [None]
  - DRUG INTERACTION [None]
  - ECTOPIC PREGNANCY [None]
  - PREGNANCY WITH IMPLANT CONTRACEPTIVE [None]
